FAERS Safety Report 15682736 (Version 2)
Quarter: 2019Q1

REPORT INFORMATION
  Report Type: Spontaneous
  Country: US (occurrence: US)
  Receive Date: 20181203
  Receipt Date: 20190110
  Transmission Date: 20190417
  Serious: No
  Sender: FDA-Public Use
  Company Number: US-ASTRAZENECA-2018SF57240

PATIENT
  Sex: Male
  Weight: 141.5 kg

DRUGS (3)
  1. METFORMIN [Concomitant]
     Active Substance: METFORMIN HYDROCHLORIDE
  2. BYDUREON BCISE [Suspect]
     Active Substance: EXENATIDE
     Indication: TYPE 2 DIABETES MELLITUS
     Route: 058
     Dates: start: 2018
  3. METFORMIN [Concomitant]
     Active Substance: METFORMIN HYDROCHLORIDE

REACTIONS (7)
  - Injection site discolouration [Recovered/Resolved]
  - Pain in extremity [Recovered/Resolved]
  - Injection site reaction [Recovered/Resolved]
  - Injection site bruising [Recovered/Resolved]
  - Device malfunction [Unknown]
  - Wrong technique in device usage process [Unknown]
  - Injection site nodule [Recovered/Resolved]
